FAERS Safety Report 25224563 (Version 4)
Quarter: 2025Q4

REPORT INFORMATION
  Report Type: Spontaneous
  Country: US (occurrence: US)
  Receive Date: 20250422
  Receipt Date: 20251015
  Transmission Date: 20260118
  Serious: Yes (Hospitalization, Other)
  Sender: AMGEN
  Company Number: US-AMGEN-USASP2025075742

PATIENT
  Age: 39 Year
  Sex: Female

DRUGS (5)
  1. TAVNEOS [Suspect]
     Active Substance: AVACOPAN
     Indication: Granulomatosis with polyangiitis
     Dosage: 30 MILLIGRAM, BID
     Route: 065
     Dates: start: 202202, end: 2022
  2. TAVNEOS [Suspect]
     Active Substance: AVACOPAN
     Dosage: 30 MILLIGRAM, BID
     Route: 065
  3. PREDNISONE [Suspect]
     Active Substance: PREDNISONE
     Indication: Product used for unknown indication
     Dosage: 60 MILLIGRAM
     Route: 065
  4. RITUXIMAB [Suspect]
     Active Substance: RITUXIMAB
     Indication: Product used for unknown indication
     Dosage: UNK
     Route: 065
  5. CYCLOPHOSPHAMIDE [Concomitant]
     Active Substance: CYCLOPHOSPHAMIDE
     Indication: Product used for unknown indication
     Dosage: UNK (6 ROUNDS)
     Route: 065

REACTIONS (13)
  - Pituitary tumour benign [Unknown]
  - Blindness [Recovered/Resolved with Sequelae]
  - Hypothyroidism [Unknown]
  - Diabetes insipidus [Unknown]
  - Perinatal depression [Not Recovered/Not Resolved]
  - Granulomatosis with polyangiitis [Not Recovered/Not Resolved]
  - Headache [Unknown]
  - COVID-19 [Unknown]
  - Hormone level abnormal [Unknown]
  - Pain [Recovered/Resolved with Sequelae]
  - Weight increased [Unknown]
  - Asthenia [Unknown]
  - Maternal exposure during pregnancy [Unknown]

NARRATIVE: CASE EVENT DATE: 20220101
